FAERS Safety Report 7286662-2 (Version None)
Quarter: 2011Q1

REPORT INFORMATION
  Report Type: 
  Country: None (occurrence: None)
  Receive Date: 20110210
  Receipt Date: 20110207
  Transmission Date: 20110831
  Serious: Yes (Life-Threatening, Other)
  Sender: FDA-Public Use
  Company Number: JP-PFIZER INC-2010180559

PATIENT
  Age: 75 Year
  Sex: Male

DRUGS (3)
  1. SUTENT [Suspect]
     Dosage: 25 MG/DAY
     Route: 048
  2. SUTENT [Suspect]
     Dosage: 37.5 MG/DAY
     Route: 048
  3. SUTENT [Suspect]
     Indication: RENAL CELL CARCINOMA
     Dosage: 50 MG, 1X/DAY
     Route: 048
     Dates: start: 20100705

REACTIONS (2)
  - MYOCARDITIS [None]
  - CARDIOMYOPATHY [None]
